FAERS Safety Report 16979676 (Version 2)
Quarter: 2020Q1

REPORT INFORMATION
  Report Type: Report from Study
  Country: IT (occurrence: IT)
  Receive Date: 20191031
  Receipt Date: 20200110
  Transmission Date: 20200409
  Serious: Yes (Other)
  Sender: FDA-Public Use
  Company Number: IT-PFIZER INC-2019462398

PATIENT
  Age: 32 Year
  Sex: Female

DRUGS (2)
  1. RIVOTRIL [Suspect]
     Active Substance: CLONAZEPAM
     Dosage: 10 ML, TOTAL
     Route: 048
     Dates: start: 20191009, end: 20191009
  2. XANAX [Suspect]
     Active Substance: ALPRAZOLAM
     Dosage: 10 TABLETS TOTAL
     Route: 048
     Dates: start: 20191009, end: 20191009

REACTIONS (3)
  - Drug abuse [Recovered/Resolved]
  - Intentional self-injury [Recovered/Resolved]
  - Sopor [Recovered/Resolved]

NARRATIVE: CASE EVENT DATE: 20191009
